FAERS Safety Report 20520734 (Version 1)
Quarter: 2022Q1

REPORT INFORMATION
  Report Type: Spontaneous
  Country: US (occurrence: US)
  Receive Date: 20220225
  Receipt Date: 20220225
  Transmission Date: 20220424
  Serious: No
  Sender: FDA-Public Use
  Company Number: US-PFIZER INC-2021562430

PATIENT
  Age: 49 Year
  Sex: Female
  Weight: 54.43 kg

DRUGS (2)
  1. ALPRAZOLAM [Suspect]
     Active Substance: ALPRAZOLAM
     Indication: Emotional disorder
     Dosage: 0.25 MG, 2X/DAY
     Dates: start: 20210410, end: 20210413
  2. ALPRAZOLAM [Suspect]
     Active Substance: ALPRAZOLAM
     Dosage: 0.25 MG, 2X/DAY
     Dates: start: 20210510, end: 20210513

REACTIONS (8)
  - Hypoaesthesia [Not Recovered/Not Resolved]
  - Memory impairment [Unknown]
  - Anxiety [Unknown]
  - Nervousness [Unknown]
  - Musculoskeletal stiffness [Unknown]
  - Off label use [Unknown]
  - Contraindicated product administered [Unknown]
  - Intentional product use issue [Unknown]

NARRATIVE: CASE EVENT DATE: 20210101
